FAERS Safety Report 8608763-6 (Version None)
Quarter: 2012Q3

REPORT INFORMATION
  Report Type: 
  Country: None (occurrence: None)
  Receive Date: 20120821
  Receipt Date: 20120809
  Transmission Date: 20120928
  Serious: No
  Sender: FDA-Public Use
  Company Number: US-ASTRAZENECA-2012SE56396

PATIENT
  Age: 73 Year
  Sex: Female

DRUGS (2)
  1. SYMBICORT [Suspect]
     Dosage: 80/4.5 MCG,ONE INHALATION TWO TIMES A DAY
     Route: 055
  2. PULMICORT FLEXHALER [Suspect]
     Dosage: TWO PUFF, TWO TIMES A DAY
     Route: 055

REACTIONS (2)
  - INTENTIONAL DRUG MISUSE [None]
  - MUSCLE SPASMS [None]
